FAERS Safety Report 5640036-6 (Version None)
Quarter: 2008Q1

REPORT INFORMATION
  Report Type: 
  Country: None (occurrence: None)
  Receive Date: 20080226
  Receipt Date: 20080226
  Transmission Date: 20080703
  Serious: No
  Sender: FDA-Public Use
  Company Number: None

PATIENT
  Age: 60 Year
  Sex: Male
  Weight: 80 kg

DRUGS (2)
  1. CARVEDILOL [Suspect]
     Indication: CARDIOMYOPATHY
     Dosage: 12.5MG BID PO
     Route: 048
     Dates: start: 20080114, end: 20080122
  2. VARENICLINE [Suspect]
     Indication: NICOTINE DEPENDENCE
     Dosage: 0.5MG BID PO
     Route: 048
     Dates: start: 20080118

REACTIONS (1)
  - HYPOTENSION [None]
